FAERS Safety Report 4409598-0 (Version None)
Quarter: 2004Q3

REPORT INFORMATION
  Report Type: 
  Country: None (occurrence: None)
  Receive Date: 20040726
  Receipt Date: 20040712
  Transmission Date: 20050211
  Serious: Yes (Hospitalization, Other)
  Sender: FDA-Public Use
  Company Number: 2004-DE-03839DE

PATIENT
  Age: 23 Year
  Sex: Male

DRUGS (1)
  1. CATAPRESAN 300 (CLONIDINE) (TA) (CLONIDINE-HCL) [Suspect]
     Dosage: 1X15 20 TABLETS (NR, 1X15-20 TABLETS)
     Route: 048

REACTIONS (6)
  - BRADYCARDIA [None]
  - DRUG ABUSER [None]
  - HYPOTENSION [None]
  - INTENTIONAL OVERDOSE [None]
  - SOMNOLENCE [None]
  - SUICIDE ATTEMPT [None]
